FAERS Safety Report 10249621 (Version 1)
Quarter: 2014Q2

REPORT INFORMATION
  Report Type: Spontaneous
  Country: US (occurrence: US)
  Receive Date: 20140620
  Receipt Date: 20140620
  Transmission Date: 20141212
  Serious: No
  Sender: FDA-Public Use
  Company Number: US-BAYER-2014-092625

PATIENT
  Sex: Female

DRUGS (1)
  1. ALEVE CAPLET [Suspect]
     Indication: HEADACHE
     Dosage: UNK
     Route: 048

REACTIONS (4)
  - Dyspepsia [Unknown]
  - Chest pain [Unknown]
  - Musculoskeletal pain [Unknown]
  - Pain in extremity [Unknown]
